FAERS Safety Report 8104503-8 (Version None)
Quarter: 2012Q1

REPORT INFORMATION
  Report Type: 
  Country: None (occurrence: None)
  Receive Date: 20120130
  Receipt Date: 20120119
  Transmission Date: 20120608
  Serious: Yes (Other)
  Sender: FDA-Public Use
  Company Number: CA-JNJFOC-20120110854

PATIENT
  Sex: Female

DRUGS (1)
  1. TYLENOL ULTRA RELIEF MIGRAINE PAIN [Suspect]
     Indication: MIGRAINE
     Route: 065

REACTIONS (5)
  - PAIN [None]
  - PRODUCT COATING ISSUE [None]
  - GASTRIC HAEMORRHAGE [None]
  - ABDOMINAL PAIN UPPER [None]
  - REACTION TO DRUG EXCIPIENTS [None]
